FAERS Safety Report 9715755 (Version 6)
Quarter: 2018Q2

REPORT INFORMATION
  Report Type: Spontaneous
  Country: JP (occurrence: JP)
  Receive Date: 20131127
  Receipt Date: 20180517
  Transmission Date: 20180711
  Serious: Yes (Hospitalization)
  Sender: FDA-Public Use
  Company Number: JP-BAYER-2013-142557

PATIENT
  Age: 30 Year
  Sex: Female
  Weight: 42 kg

DRUGS (4)
  1. YAZ [Suspect]
     Active Substance: DROSPIRENONE\ETHINYL ESTRADIOL
     Indication: MENORRHAGIA
  2. HEPARIN [Suspect]
     Active Substance: HEPARIN SODIUM
     Indication: CEREBRAL INFARCTION
     Dosage: UNK
     Dates: start: 20131108, end: 20131204
  3. HEPARIN [Suspect]
     Active Substance: HEPARIN SODIUM
     Indication: CEREBRAL THROMBOSIS
     Dosage: 15 KIU, QD
     Dates: start: 20131103, end: 201311
  4. YAZ [Suspect]
     Active Substance: DROSPIRENONE\ETHINYL ESTRADIOL
     Indication: DYSMENORRHOEA
     Dosage: DAILY DOSE 1 DF
     Route: 048
     Dates: start: 20130923, end: 20131101

REACTIONS (10)
  - Seizure [Recovered/Resolved]
  - Cerebral thrombosis [Recovering/Resolving]
  - Metrorrhagia [Recovered/Resolved]
  - Cerebral infarction [Recovering/Resolving]
  - Facial paralysis [Recovering/Resolving]
  - Epilepsy [Recovered/Resolved]
  - Headache [Recovering/Resolving]
  - Iron deficiency anaemia [Recovering/Resolving]
  - Hypoaesthesia [Recovering/Resolving]
  - Hemiparesis [Recovering/Resolving]

NARRATIVE: CASE EVENT DATE: 201311
